FAERS Safety Report 6212292-7 (Version None)
Quarter: 2009Q2

REPORT INFORMATION
  Report Type: 
  Country: None (occurrence: None)
  Receive Date: 20090529
  Receipt Date: 20090514
  Transmission Date: 20091009
  Serious: Yes (Other)
  Sender: FDA-Public Use
  Company Number: 8046646

PATIENT
  Age: 74 Year
  Sex: Female

DRUGS (2)
  1. KEPPRA [Suspect]
     Dosage: 500 MG 2/D PO
     Route: 048
  2. ANTI VITAMINE K [Concomitant]

REACTIONS (1)
  - PANCYTOPENIA [None]
